FAERS Safety Report 6856562-8 (Version None)
Quarter: 2010Q3

REPORT INFORMATION
  Report Type: 
  Country: None (occurrence: None)
  Receive Date: 20100716
  Receipt Date: 20100716
  Transmission Date: 20110219
  Serious: Yes (Hospitalization)
  Sender: FDA-Public Use
  Company Number: None

PATIENT
  Age: 58 Year
  Sex: Male
  Weight: 81.6475 kg

DRUGS (1)
  1. TAMSULOSIN 0.4MG GLAXO SMITH KLINE [Suspect]
     Indication: BENIGN PROSTATIC HYPERPLASIA
     Dates: start: 20100630, end: 20100715

REACTIONS (1)
  - ATRIAL FIBRILLATION [None]
